FAERS Safety Report 21975317 (Version 1)
Quarter: 2023Q1

REPORT INFORMATION
  Report Type: Other
  Country: AU (occurrence: AU)
  Receive Date: 20230210
  Receipt Date: 20230210
  Transmission Date: 20230417
  Serious: Yes (Hospitalization)
  Sender: FDA-Public Use
  Company Number: AU-TOLMAR, INC.-20AU022315

PATIENT
  Age: 55 Year
  Sex: Male
  Weight: 114 kg

DRUGS (10)
  1. LEUPROLIDE ACETATE [Suspect]
     Active Substance: LEUPROLIDE ACETATE
     Indication: Prostate cancer
     Dosage: 22.5 MG, Q 3 MONTH
     Route: 058
     Dates: start: 20171102
  2. LEUPROLIDE ACETATE [Suspect]
     Active Substance: LEUPROLIDE ACETATE
     Dosage: 22.5 MG, Q 3 MONTH
     Route: 058
     Dates: start: 20200514
  3. ELIGARD [Suspect]
     Active Substance: LEUPROLIDE ACETATE
     Indication: Prostate cancer
     Dosage: UNK
  4. ENZALUTAMIDE [Suspect]
     Active Substance: ENZALUTAMIDE
     Indication: Prostate cancer
     Dosage: UNK, QD
     Route: 048
     Dates: start: 20171103
  5. ENZALUTAMIDE [Suspect]
     Active Substance: ENZALUTAMIDE
     Dosage: UNK, QD
     Route: 048
     Dates: start: 20200712
  6. COVERAM [Concomitant]
     Active Substance: AMLODIPINE\PERINDOPRIL
     Indication: Hypertension
     Dosage: UNK
     Dates: start: 2017
  7. IBUPROFEN [Concomitant]
     Active Substance: IBUPROFEN
     Indication: Pain
     Dosage: UNK
     Dates: start: 2012
  8. MAGNESIUM [Concomitant]
     Active Substance: MAGNESIUM
     Indication: Arthritis
     Dosage: UNK
     Dates: start: 2016
  9. HYDROCHLOROTHIAZIDE [Concomitant]
     Active Substance: HYDROCHLOROTHIAZIDE
     Indication: Oedema peripheral
     Dosage: UNK
     Dates: start: 201804
  10. ROSUVASTATIN [Concomitant]
     Active Substance: ROSUVASTATIN
     Indication: Hypercholesterolaemia
     Dosage: UNK
     Dates: start: 201812

REACTIONS (1)
  - Arthralgia [Recovered/Resolved with Sequelae]

NARRATIVE: CASE EVENT DATE: 20181201
